FAERS Safety Report 7824328-8 (Version None)
Quarter: 2011Q4

REPORT INFORMATION
  Report Type: 
  Country: None (occurrence: None)
  Receive Date: 20111019
  Receipt Date: 20111005
  Transmission Date: 20120403
  Serious: Yes (Life-Threatening, Hospitalization)
  Sender: FDA-Public Use
  Company Number: TR-BAYER-2011-095284

PATIENT
  Age: 67 Year
  Sex: Male

DRUGS (2)
  1. CARVEDILOL [Concomitant]
     Dosage: DAILY DOSE 12.5 MG
  2. ASPIRIN [Suspect]
     Dosage: DAILY DOSE 300 MG

REACTIONS (4)
  - VOCAL CORD PARALYSIS [None]
  - WHEEZING [None]
  - STRIDOR [None]
  - RESPIRATORY ARREST [None]
